FAERS Safety Report 8268435-7 (Version None)
Quarter: 2012Q2

REPORT INFORMATION
  Report Type: 
  Country: None (occurrence: None)
  Receive Date: 20120409
  Receipt Date: 20120329
  Transmission Date: 20120825
  Serious: Yes (Hospitalization, Other)
  Sender: FDA-Public Use
  Company Number: US-ELI_LILLY_AND_COMPANY-US201103006899

PATIENT
  Sex: Female

DRUGS (11)
  1. LISINOPRIL [Concomitant]
  2. ENABLEX                            /01760401/ [Concomitant]
  3. ASCORBIC ACID [Concomitant]
  4. VITAMIN D [Concomitant]
  5. NORCO [Concomitant]
  6. FORTEO [Suspect]
     Dosage: 20 UG, QD
     Dates: end: 20120125
  7. TYLENOL (CAPLET) [Concomitant]
  8. FORTEO [Suspect]
     Dosage: 20 UG, QD
  9. FORTEO [Suspect]
     Indication: OSTEOPOROSIS
     Dosage: 20 UG, QD
     Dates: start: 20101101
  10. CALCIUM WITH VITAMIN D [Concomitant]
  11. OXAZEPAM [Concomitant]
     Dosage: UNK, PRN

REACTIONS (9)
  - LOWER LIMB FRACTURE [None]
  - GAIT DISTURBANCE [None]
  - FALL [None]
  - DYSKINESIA [None]
  - OEDEMA PERIPHERAL [None]
  - LIMB DISCOMFORT [None]
  - DRUG DOSE OMISSION [None]
  - HIP FRACTURE [None]
  - INTENTIONAL DRUG MISUSE [None]
